FAERS Safety Report 25120057 (Version 1)
Quarter: 2025Q1

REPORT INFORMATION
  Report Type: Report from Study
  Country: US (occurrence: US)
  Receive Date: 20250325
  Receipt Date: 20250325
  Transmission Date: 20250408
  Serious: Yes (Other)
  Sender: ALEXION PHARMACEUTICALS
  Company Number: US-AstraZeneca-CH-00831589A

PATIENT

DRUGS (2)
  1. ULTOMIRIS [Suspect]
     Active Substance: RAVULIZUMAB-CWVZ
     Indication: Myasthenia gravis
     Route: 065
  2. GABAPENTIN [Suspect]
     Active Substance: GABAPENTIN
     Indication: Neuropathy peripheral
     Route: 065

REACTIONS (11)
  - Neuropathy peripheral [Unknown]
  - Autoimmune disorder [Unknown]
  - Somnolence [Unknown]
  - Dyspnoea [Unknown]
  - Wheezing [Unknown]
  - Fall [Unknown]
  - Foot fracture [Unknown]
  - Ankle fracture [Unknown]
  - Muscle fatigue [Unknown]
  - Fatigue [Unknown]
  - Asthenia [Unknown]
